FAERS Safety Report 9521247 (Version 1)
Quarter: 2013Q3

REPORT INFORMATION
  Report Type: Spontaneous
  Country: US (occurrence: US)
  Receive Date: 20130913
  Receipt Date: 20130913
  Transmission Date: 20140515
  Serious: Yes (Hospitalization, Other)
  Sender: FDA-Public Use
  Company Number: US-ASTRAZENECA-2013SE68265

PATIENT
  Age: 45 Year
  Sex: Male
  Weight: 133.8 kg

DRUGS (3)
  1. CRESTOR [Suspect]
     Indication: BLOOD CHOLESTEROL INCREASED
     Route: 048
     Dates: start: 2003, end: 2013
  2. CRESTOR [Suspect]
     Indication: BLOOD CHOLESTEROL INCREASED
     Route: 048
     Dates: start: 2013, end: 201308
  3. OXYCONTIN [Concomitant]
     Indication: PROCEDURAL PAIN

REACTIONS (9)
  - Intervertebral disc protrusion [Recovered/Resolved]
  - Inguinal hernia [Recovered/Resolved]
  - Abdominal hernia [Recovered/Resolved]
  - Aortic aneurysm [Not Recovered/Not Resolved]
  - Loss of consciousness [Recovered/Resolved]
  - Malaise [Not Recovered/Not Resolved]
  - Fatigue [Not Recovered/Not Resolved]
  - Drug dose omission [Recovered/Resolved]
  - Intentional drug misuse [Recovered/Resolved]
